FAERS Safety Report 11890370 (Version 2)
Quarter: 2016Q1

REPORT INFORMATION
  Report Type: Report from Study
  Country: US (occurrence: US)
  Receive Date: 20160105
  Receipt Date: 20160108
  Transmission Date: 20160526
  Serious: Yes (Hospitalization, Other)
  Sender: FDA-Public Use
  Company Number: US-009507513-1601USA000922

PATIENT
  Age: 66 Year
  Sex: Male
  Weight: 86.44 kg

DRUGS (5)
  1. OMPRAZOLE [Concomitant]
     Active Substance: OMEPRAZOLE
     Dosage: 20 MG, QD
     Dates: start: 20151110
  2. PEMBROLIZUMAB. [Suspect]
     Active Substance: PEMBROLIZUMAB
     Indication: GLIOBLASTOMA
     Dosage: 200 MG EVERY 3 WEEKS, CYCLICAL
     Route: 042
     Dates: start: 20151119
  3. ATIVAN [Concomitant]
     Active Substance: LORAZEPAM
     Dosage: 0.5 MG, TID, PRN
     Route: 048
     Dates: start: 20151110
  4. BEVACIZUMAB [Suspect]
     Active Substance: BEVACIZUMAB
     Indication: GLIOBLASTOMA
     Dosage: 10 MG EVERY 2 WEEKS, CYCLICAL
     Route: 042
     Dates: start: 20151119
  5. BUSPIRONE HYDROCHLORIDE. [Concomitant]
     Active Substance: BUSPIRONE HYDROCHLORIDE
     Dosage: 5 UNK, TID
     Route: 048
     Dates: start: 20151222

REACTIONS (3)
  - Cognitive disorder [Unknown]
  - Gait disturbance [Unknown]
  - Aphasia [Unknown]

NARRATIVE: CASE EVENT DATE: 2015
